FAERS Safety Report 18541036 (Version 1)
Quarter: 2020Q4

REPORT INFORMATION
  Report Type: Spontaneous
  Country: US (occurrence: US)
  Receive Date: 20201124
  Receipt Date: 20201124
  Transmission Date: 20210114
  Serious: Yes (Other)
  Sender: FDA-Public Use
  Company Number: US-JNJFOC-20201135224

PATIENT
  Age: 21 Year
  Sex: Female

DRUGS (2)
  1. TYLENOL [Suspect]
     Active Substance: ACETAMINOPHEN
     Indication: INTESTINAL OBSTRUCTION
     Route: 065
  2. TYLENOL [Suspect]
     Active Substance: ACETAMINOPHEN
     Indication: COLITIS ULCERATIVE

REACTIONS (5)
  - Adverse event [Unknown]
  - Product use in unapproved indication [Unknown]
  - Brain oedema [Not Recovered/Not Resolved]
  - Off label use [Unknown]
  - Brain injury [Not Recovered/Not Resolved]
